FAERS Safety Report 24652808 (Version 1)
Quarter: 2024Q4

REPORT INFORMATION
  Report Type: Spontaneous
  Country: VN (occurrence: VN)
  Receive Date: 20241122
  Receipt Date: 20241122
  Transmission Date: 20250115
  Serious: Yes (Other)
  Sender: RANBAXY
  Company Number: VN-SUN PHARMACEUTICAL INDUSTRIES LTD-2024R1-480573

PATIENT
  Age: 61 Year
  Sex: Male

DRUGS (3)
  1. CARBOPLATIN [Suspect]
     Active Substance: CARBOPLATIN
     Indication: Histiocytic sarcoma
     Dosage: UNK
     Route: 065
  2. ETOPOSIDE [Suspect]
     Active Substance: ETOPOSIDE
     Indication: Histiocytic sarcoma
     Dosage: UNK
     Route: 065
  3. IFOSFAMIDE [Suspect]
     Active Substance: IFOSFAMIDE
     Indication: Histiocytic sarcoma
     Dosage: UNK
     Route: 065

REACTIONS (1)
  - Disease progression [Unknown]
